FAERS Safety Report 21383977 (Version 1)
Quarter: 2022Q3

REPORT INFORMATION
  Report Type: Report from Study
  Country: BR (occurrence: BR)
  Receive Date: 20220928
  Receipt Date: 20220928
  Transmission Date: 20221026
  Serious: Yes (Other)
  Sender: FDA-Public Use
  Company Number: BR-JNJFOC-20220943179

PATIENT
  Age: 24 Year
  Sex: Female

DRUGS (3)
  1. SIMPONI [Suspect]
     Active Substance: GOLIMUMAB
     Indication: Ankylosing spondylitis
     Route: 058
     Dates: start: 20200621
  2. SIMPONI [Suspect]
     Active Substance: GOLIMUMAB
  3. FLUOXETINE [Concomitant]
     Active Substance: FLUOXETINE HYDROCHLORIDE
     Indication: Product used for unknown indication

REACTIONS (12)
  - Intestinal haemorrhage [Unknown]
  - Syncope [Unknown]
  - Injection site erythema [Unknown]
  - Injection site induration [Unknown]
  - Rash erythematous [Unknown]
  - Influenza [Unknown]
  - Abdominal pain [Recovering/Resolving]
  - Proctalgia [Unknown]
  - Frequent bowel movements [Unknown]
  - Weight decreased [Unknown]
  - Pruritus [Unknown]
  - Wrong technique in product usage process [Unknown]

NARRATIVE: CASE EVENT DATE: 20220601
